FAERS Safety Report 8803884 (Version 1)
Quarter: 2012Q4

REPORT INFORMATION
  Report Type: 
  Country: RU (occurrence: RU)
  Receive Date: 20120923
  Receipt Date: 20120923
  Transmission Date: 20130627
  Serious: Yes (Hospitalization, Other)
  Sender: FDA-Public Use
  Company Number: PHHY2012RU082020

PATIENT
  Age: 63 Year
  Sex: Female

DRUGS (1)
  1. AFINITOR [Suspect]
     Indication: BREAST CANCER
     Dosage: 10 mg, per day
     Route: 048
     Dates: start: 20120606

REACTIONS (3)
  - Cardiac fibrillation [Recovering/Resolving]
  - Pyoderma [Recovering/Resolving]
  - Stomatitis [Recovering/Resolving]
